FAERS Safety Report 4545305-9 (Version None)
Quarter: 2005Q1

REPORT INFORMATION
  Report Type: 
  Country: None (occurrence: None)
  Receive Date: 20050103
  Receipt Date: 20041220
  Transmission Date: 20050727
  Serious: Yes (Hospitalization, Other)
  Sender: FDA-Public Use
  Company Number: HQWYE104520DEC04

PATIENT
  Age: 4 Year
  Sex: Male

DRUGS (3)
  1. SUPRAX [Suspect]
     Indication: BRONCHITIS
     Dosage: ORAL
     Route: 048
     Dates: start: 20030614
  2. SUPRAX [Suspect]
     Indication: TONSILLITIS
     Dosage: ORAL
     Route: 048
     Dates: start: 20030614
  3. SINGULAIR [Suspect]
     Indication: BRONCHITIS
     Route: 048

REACTIONS (1)
  - PANCREATITIS [None]
